FAERS Safety Report 23043896 (Version 2)
Quarter: 2023Q4

REPORT INFORMATION
  Report Type: Spontaneous
  Country: US (occurrence: US)
  Receive Date: 20231009
  Receipt Date: 20231011
  Transmission Date: 20240110
  Serious: No
  Sender: FDA-Public Use
  Company Number: US-AMGEN-USASP2023177481

PATIENT

DRUGS (1)
  1. REPATHA [Suspect]
     Active Substance: EVOLOCUMAB
     Indication: Blood cholesterol increased
     Route: 065

REACTIONS (5)
  - Influenza like illness [Unknown]
  - Fatigue [Recovered/Resolved]
  - Ventricular extrasystoles [Unknown]
  - Burning sensation [Not Recovered/Not Resolved]
  - Nasopharyngitis [Unknown]
